FAERS Safety Report 7266350-9 (Version None)
Quarter: 2011Q1

REPORT INFORMATION
  Report Type: 
  Country: None (occurrence: None)
  Receive Date: 20110131
  Receipt Date: 20110124
  Transmission Date: 20110831
  Serious: Yes (Hospitalization)
  Sender: FDA-Public Use
  Company Number: US-B.I. PHARMACEUTICALS,INC./RIDGEFIELD-2011-BP-01554BP

PATIENT
  Age: 70 Year
  Sex: Male
  Weight: 108.86 kg

DRUGS (1)
  1. PRADAXA [Suspect]
     Indication: ATRIAL FIBRILLATION
     Dosage: 300 MG
     Route: 048
     Dates: start: 20101215, end: 20101229

REACTIONS (2)
  - DEEP VEIN THROMBOSIS [None]
  - OEDEMA PERIPHERAL [None]
